FAERS Safety Report 24364987 (Version 1)
Quarter: 2024Q3

REPORT INFORMATION
  Report Type: Spontaneous
  Country: GB (occurrence: GB)
  Receive Date: 20240926
  Receipt Date: 20240926
  Transmission Date: 20241016
  Serious: Yes (Other)
  Sender: BRISTOL MYERS SQUIBB
  Company Number: None

PATIENT
  Age: 65 Year

DRUGS (3)
  1. ORENCIA [Suspect]
     Active Substance: ABATACEPT
     Indication: Product used for unknown indication
     Dosage: 9 PENS IN TOTAL
  2. ACETAMINOPHEN [Concomitant]
     Active Substance: ACETAMINOPHEN
     Indication: Product used for unknown indication
  3. CODEINE [Concomitant]
     Active Substance: CODEINE
     Indication: Product used for unknown indication

REACTIONS (7)
  - Back pain [Unknown]
  - Arthralgia [Unknown]
  - Gingival bleeding [Unknown]
  - Sinusitis [Unknown]
  - Urinary tract infection [Unknown]
  - Rash erythematous [Unknown]
  - Ear infection [Unknown]
